FAERS Safety Report 17780677 (Version 1)
Quarter: 2020Q2

REPORT INFORMATION
  Report Type: Spontaneous
  Country: US (occurrence: US)
  Receive Date: 20200513
  Receipt Date: 20200513
  Transmission Date: 20200714
  Serious: Yes (Hospitalization)
  Sender: FDA-Public Use
  Company Number: None

PATIENT
  Age: 25 Year
  Sex: Male

DRUGS (1)
  1. GLATIRAMER 20MG/ML SYR [Suspect]
     Active Substance: GLATIRAMER ACETATE
     Indication: MULTIPLE SCLEROSIS
     Dosage: ?          OTHER ROUTE:INJECT?
     Dates: start: 20190503

REACTIONS (4)
  - Joint swelling [None]
  - Insurance issue [None]
  - Infection [None]
  - Therapy interrupted [None]

NARRATIVE: CASE EVENT DATE: 20200509
